FAERS Safety Report 17840992 (Version 3)
Quarter: 2022Q2

REPORT INFORMATION
  Report Type: Report from Study
  Country: None (occurrence: IT)
  Receive Date: 20200529
  Receipt Date: 20220415
  Transmission Date: 20220721
  Serious: Yes (Hospitalization)
  Sender: FDA-Public Use
  Company Number: IT-AKCEA THERAPEUTICS-2020IS001220

PATIENT
  Age: 68 Year
  Sex: Male
  Weight: 87.182 kg

DRUGS (8)
  1. TEGSEDI [Suspect]
     Active Substance: INOTERSEN SODIUM
     Indication: Hereditary neuropathic amyloidosis
     Route: 058
     Dates: start: 20191201, end: 20200331
  2. DEVICE [Suspect]
     Active Substance: DEVICE
  3. BISOPROLOL [Concomitant]
     Active Substance: BISOPROLOL
     Route: 048
  4. LASIX [Concomitant]
     Active Substance: FUROSEMIDE
     Route: 048
  5. PANTOPRAZOLE SODIUM [Concomitant]
     Active Substance: PANTOPRAZOLE SODIUM
     Route: 048
  6. LANOXIN [Concomitant]
     Active Substance: DIGOXIN
     Route: 048
  7. XARELTO [Concomitant]
     Active Substance: RIVAROXABAN
     Route: 048
  8. CANRENOIC ACID [Concomitant]
     Active Substance: CANRENOIC ACID
     Route: 048

REACTIONS (4)
  - Nephrolithiasis [Recovering/Resolving]
  - Pyonephrosis [Recovering/Resolving]
  - Hydronephrosis [Recovering/Resolving]
  - Acute kidney injury [Recovering/Resolving]

NARRATIVE: CASE EVENT DATE: 20200406
